FAERS Safety Report 7722951-2 (Version None)
Quarter: 2011Q3

REPORT INFORMATION
  Report Type: 
  Country: None (occurrence: None)
  Receive Date: 20110825
  Receipt Date: 20110816
  Transmission Date: 20111222
  Serious: Yes (Hospitalization)
  Sender: FDA-Public Use
  Company Number: 15861065

PATIENT
  Age: 87 Year
  Sex: Female

DRUGS (4)
  1. APIXABAN [Suspect]
     Indication: EMBOLISM
     Dosage: 10 MILLIGRAM 1 DAY, ORAL
     Route: 048
     Dates: start: 20110620, end: 20110625
  2. ENOXAPARIN SODIUM [Suspect]
     Indication: EMBOLISM
     Dosage: 1 DOSAGE FORM 1 DAY SC
     Route: 058
     Dates: start: 20110620, end: 20110624
  3. PLACEBO [Suspect]
     Indication: EMBOLISM
     Dates: start: 20110620, end: 20110601
  4. WARFARIN SODIUM [Suspect]
     Indication: EMBOLISM
     Dosage: 2 MILLIGRAM 1 DAY, ORAL
     Route: 048
     Dates: start: 20110620, end: 20110625

REACTIONS (2)
  - RETINAL HAEMORRHAGE [None]
  - GLAUCOMA [None]
